FAERS Safety Report 4287364-7 (Version None)
Quarter: 2004Q1

REPORT INFORMATION
  Report Type: 
  Country: None (occurrence: None)
  Receive Date: 20040205
  Receipt Date: 20031215
  Transmission Date: 20041129
  Serious: Yes (Hospitalization)
  Sender: FDA-Public Use
  Company Number: A04200300860

PATIENT
  Age: 81 Year
  Sex: Female

DRUGS (1)
  1. ELOXATIN [Suspect]
     Indication: COLON CANCER METASTATIC
     Dosage: 190 MG OTHER INTRAVENOUS DRIP, FEW HRS.
     Route: 041
     Dates: start: 20031215, end: 20031215

REACTIONS (5)
  - ANGIONEUROTIC OEDEMA [None]
  - CYANOSIS [None]
  - DYSPNOEA [None]
  - LARYNGEAL OEDEMA [None]
  - STRIDOR [None]
